FAERS Safety Report 14978969 (Version 1)
Quarter: 2018Q2

REPORT INFORMATION
  Report Type: Spontaneous
  Country: RO (occurrence: RO)
  Receive Date: 20180606
  Receipt Date: 20180606
  Transmission Date: 20180711
  Serious: Yes (Other)
  Sender: FDA-Public Use
  Company Number: RO-PFIZER INC-2018223711

PATIENT

DRUGS (5)
  1. SORTIS [Suspect]
     Active Substance: ATORVASTATIN
     Indication: INFARCTION
     Dosage: UNK
     Dates: start: 2018
  2. PLAVIX [Suspect]
     Active Substance: CLOPIDOGREL BISULFATE
     Indication: INFARCTION
     Dosage: UNK
     Dates: start: 2018
  3. NORVASC [Suspect]
     Active Substance: AMLODIPINE BESYLATE
     Indication: INFARCTION
     Dosage: UNK
     Dates: start: 2018
  4. ASPENTER [Suspect]
     Active Substance: ASPIRIN
     Indication: INFARCTION
     Dosage: 75 MG, UNK
     Dates: start: 2018
  5. PRESTARIUM [Suspect]
     Active Substance: PERINDOPRIL
     Indication: INFARCTION
     Dosage: UNK
     Dates: start: 2018

REACTIONS (2)
  - Product use in unapproved indication [Unknown]
  - Heart rate decreased [Unknown]

NARRATIVE: CASE EVENT DATE: 2018
